FAERS Safety Report 20360196 (Version 1)
Quarter: 2022Q1

REPORT INFORMATION
  Report Type: Spontaneous
  Country: US (occurrence: US)
  Receive Date: 20220121
  Receipt Date: 20220121
  Transmission Date: 20220423
  Serious: Yes (Other)
  Sender: FDA-Public Use
  Company Number: US-JNJFOC-20220115567

PATIENT
  Age: 46 Year
  Sex: Female

DRUGS (1)
  1. PONVORY [Suspect]
     Active Substance: PONESIMOD
     Indication: Product used for unknown indication
     Route: 065
     Dates: start: 20220107, end: 20220109

REACTIONS (3)
  - Cardiac flutter [Unknown]
  - Hyperhidrosis [Unknown]
  - Adverse drug reaction [Unknown]
